FAERS Safety Report 9069908 (Version 1)
Quarter: 2013Q1

REPORT INFORMATION
  Report Type: Spontaneous
  Country: RO (occurrence: RO)
  Receive Date: 20130215
  Receipt Date: 20130215
  Transmission Date: 20140127
  Serious: Yes (Hospitalization)
  Sender: FDA-Public Use
  Company Number: RO-JNJFOC-20130206102

PATIENT
  Age: 39 None
  Sex: Female
  Weight: 60 kg

DRUGS (2)
  1. REMICADE [Suspect]
     Indication: COLITIS ULCERATIVE
     Route: 042
     Dates: start: 20110126, end: 20130117
  2. SALOFALK [Concomitant]
     Indication: PROCTOCOLITIS
     Dosage: TOTAL DAILY DOSE: ^24/3^
     Route: 065
     Dates: start: 2008

REACTIONS (1)
  - Pulmonary tuberculosis [Unknown]
